FAERS Safety Report 18702128 (Version 2)
Quarter: 2021Q1

REPORT INFORMATION
  Report Type: Spontaneous
  Country: US (occurrence: US)
  Receive Date: 20210105
  Receipt Date: 20210111
  Transmission Date: 20210419
  Serious: Yes (Other)
  Sender: FDA-Public Use
  Company Number: US-PFIZER INC-2020520615

PATIENT
  Age: 56 Year
  Sex: Female

DRUGS (6)
  1. DOXORUBICIN HCL [Suspect]
     Active Substance: DOXORUBICIN HYDROCHLORIDE
     Dosage: UNK UNK, CYCLIC
     Dates: start: 201906
  2. DOXORUBICIN HCL [Suspect]
     Active Substance: DOXORUBICIN HYDROCHLORIDE
     Indication: ENDOMETRIAL STROMAL SARCOMA
     Dosage: CYCLE2 (AIM)
     Dates: start: 201904, end: 2019
  3. MESNA. [Suspect]
     Active Substance: MESNA
     Indication: ENDOMETRIAL STROMAL SARCOMA
     Dosage: CYCLE2 (AIM)
     Dates: start: 201904, end: 2019
  4. MESNA. [Suspect]
     Active Substance: MESNA
     Dosage: UNK UNK, CYCLIC
     Dates: start: 201906
  5. IFOSFAMIDE. [Suspect]
     Active Substance: IFOSFAMIDE
     Dosage: UNK, CYCLIC
     Dates: start: 201906
  6. IFOSFAMIDE. [Suspect]
     Active Substance: IFOSFAMIDE
     Indication: ENDOMETRIAL STROMAL SARCOMA
     Dosage: CYCLE2 (AIM)
     Dates: start: 201904, end: 2019

REACTIONS (1)
  - Encephalopathy [Unknown]

NARRATIVE: CASE EVENT DATE: 2019
